FAERS Safety Report 6370868-0 (Version None)
Quarter: 2009Q3

REPORT INFORMATION
  Report Type: 
  Country: None (occurrence: None)
  Receive Date: 20090923
  Receipt Date: 20070518
  Transmission Date: 20100115
  Serious: Yes (Other)
  Sender: FDA-Public Use
  Company Number: US-ASTRAZENECA-2006UW24916

PATIENT
  Age: 14859 Day
  Sex: Male
  Weight: 74.8 kg

DRUGS (24)
  1. SEROQUEL [Suspect]
     Indication: SCHIZOPHRENIA
     Route: 048
     Dates: start: 20030820, end: 20050804
  2. SEROQUEL [Suspect]
     Indication: BIPOLAR DISORDER
     Route: 048
     Dates: start: 20030820, end: 20050804
  3. SEROQUEL [Suspect]
     Indication: DEPRESSION
     Route: 048
     Dates: start: 20030820, end: 20050804
  4. SEROQUEL [Suspect]
     Dosage: 200-700 MG
     Route: 048
     Dates: start: 20030820
  5. SEROQUEL [Suspect]
     Dosage: 200-700 MG
     Route: 048
     Dates: start: 20030820
  6. SEROQUEL [Suspect]
     Dosage: 200-700 MG
     Route: 048
     Dates: start: 20030820
  7. HALDOL [Concomitant]
     Dates: start: 20050415
  8. THORAZINE [Concomitant]
     Dates: start: 20050513
  9. TRILAFON [Concomitant]
     Route: 048
     Dates: start: 20050610, end: 20060522
  10. ZYPREXA [Concomitant]
     Route: 048
     Dates: start: 20030130
  11. GLUCOPHAGE [Concomitant]
  12. VASOTEC [Concomitant]
  13. HUMULIN R [Concomitant]
  14. REMERON [Concomitant]
  15. ASPIRIN [Concomitant]
  16. GLUCOTROL [Concomitant]
  17. AMOXICILLIN [Concomitant]
  18. LIPITOR [Concomitant]
  19. ZOLOFT [Concomitant]
  20. MOTRIN [Concomitant]
  21. ZANTAC [Concomitant]
  22. PROZAC [Concomitant]
  23. INDOCIN [Concomitant]
  24. INH [Concomitant]

REACTIONS (3)
  - DIABETES MELLITUS [None]
  - PANCREATITIS [None]
  - TYPE 1 DIABETES MELLITUS [None]
